FAERS Safety Report 7012101-2 (Version None)
Quarter: 2010Q3

REPORT INFORMATION
  Report Type: 
  Country: None (occurrence: None)
  Receive Date: 20100922
  Receipt Date: 20100922
  Transmission Date: 20110219
  Serious: Yes (Hospitalization)
  Sender: FDA-Public Use
  Company Number: None

PATIENT
  Age: 74 Year
  Sex: Male
  Weight: 90.7194 kg

DRUGS (17)
  1. AXONA (MEDICAL FOOD) [Suspect]
     Indication: DEMENTIA
     Dosage: 20-30 G QD ORAL
     Route: 048
     Dates: start: 20100629, end: 20100728
  2. OMNICEF [Suspect]
     Indication: FURUNCLE
     Dosage: UNKNOWN UNKNOWN UNKNOWN
     Route: 065
     Dates: end: 20100711
  3. ARICEPT [Suspect]
  4. DONEPEZIL HCL [Suspect]
  5. NAMENDA [Concomitant]
  6. INSULIN [Concomitant]
  7. DILTIAZEM [Concomitant]
  8. DOXAZOSIN MESYLATE [Concomitant]
  9. OMEPRAZOLE [Concomitant]
  10. SIMVASTATIN [Concomitant]
  11. GABAPENTIN [Concomitant]
  12. CYCLOBENZAPRENE [Concomitant]
  13. DETROL [Concomitant]
  14. METHOCARBAMOL [Concomitant]
  15. VITAMIN D [Concomitant]
  16. ASPIRIN [Concomitant]
  17. LISINOPRIL [Concomitant]

REACTIONS (6)
  - BLOOD CREATININE INCREASED [None]
  - DEHYDRATION [None]
  - DIARRHOEA [None]
  - FURUNCLE [None]
  - PRESYNCOPE [None]
  - RENAL FAILURE [None]
